FAERS Safety Report 4973026-7 (Version None)
Quarter: 2006Q2

REPORT INFORMATION
  Report Type: 
  Country: None (occurrence: None)
  Receive Date: 20060414
  Receipt Date: 20060406
  Transmission Date: 20061013
  Serious: Yes (Hospitalization)
  Sender: FDA-Public Use
  Company Number: US-JNJFOC-20060401648

PATIENT
  Sex: Female
  Weight: 104.33 kg

DRUGS (22)
  1. REMICADE [Suspect]
     Indication: RHEUMATOID ARTHRITIS
     Route: 042
  2. SYNTHROID [Concomitant]
  3. SULFASALAZINE [Concomitant]
  4. COZAAR [Concomitant]
  5. PREDNISONE TAB [Concomitant]
  6. NORVASC [Concomitant]
  7. CLONIDINE [Concomitant]
  8. TOPROL-XL [Concomitant]
  9. LASIX [Concomitant]
  10. XANAX [Concomitant]
  11. FOSAMAX [Concomitant]
  12. ASPIRIN [Concomitant]
  13. CALCIUM GLUCONATE [Concomitant]
  14. MULTI-VITAMIN [Concomitant]
  15. MULTI-VITAMIN [Concomitant]
  16. MULTI-VITAMIN [Concomitant]
  17. MULTI-VITAMIN [Concomitant]
  18. MULTI-VITAMIN [Concomitant]
  19. MULTI-VITAMIN [Concomitant]
  20. MULTI-VITAMIN [Concomitant]
  21. MULTI-VITAMIN [Concomitant]
  22. ZOCOR [Concomitant]

REACTIONS (4)
  - CARDIOMEGALY [None]
  - GASTRITIS [None]
  - HIATUS HERNIA [None]
  - PULMONARY FIBROSIS [None]
